FAERS Safety Report 6379238-2 (Version None)
Quarter: 2009Q3

REPORT INFORMATION
  Report Type: 
  Country: None (occurrence: None)
  Receive Date: 20090923
  Receipt Date: 20090923
  Transmission Date: 20100115
  Serious: Yes (Hospitalization)
  Sender: FDA-Public Use
  Company Number: None

PATIENT
  Sex: Female
  Weight: 89.9 kg

DRUGS (14)
  1. WARFARIN [Suspect]
     Indication: ANTICOAGULANT THERAPY
     Dosage: 1 - 7.5MG PO DAILY
     Route: 048
     Dates: start: 20090509, end: 20090604
  2. LIDOCAINE [Concomitant]
  3. KETOROLAC TROMETHAMINE [Concomitant]
  4. METHYLPHENIDATE HCL [Concomitant]
  5. DIPHENHYDRAMINE HCL [Concomitant]
  6. QUETIAPINE [Concomitant]
  7. HYDROCORTISONE [Concomitant]
  8. ESCITALOPRAM [Concomitant]
  9. ENALAPRIL MALEATE [Concomitant]
  10. ONDANSETRON [Concomitant]
  11. LACTULOSE [Concomitant]
  12. MERTAZAPINE [Concomitant]
  13. LANSOPRAZOLE [Concomitant]
  14. HEPARIN [Concomitant]

REACTIONS (2)
  - DIARRHOEA HAEMORRHAGIC [None]
  - REFUSAL OF TREATMENT BY PATIENT [None]
